FAERS Safety Report 7967817-8 (Version None)
Quarter: 2011Q4

REPORT INFORMATION
  Report Type: 
  Country: None (occurrence: None)
  Receive Date: 20111209
  Receipt Date: 20111206
  Transmission Date: 20120403
  Serious: Yes (Hospitalization)
  Sender: FDA-Public Use
  Company Number: JP-AMGEN-JPNCT2011063916

PATIENT
  Age: 74 Year
  Sex: Female

DRUGS (2)
  1. PLACEBO [Suspect]
     Indication: BREAST CANCER
     Dosage: UNK, Q4WK
     Route: 058
     Dates: start: 20110928
  2. BLINDED DENOSUMAB [Suspect]
     Indication: BREAST CANCER
     Dosage: UNK, Q4WK
     Route: 058
     Dates: start: 20110928

REACTIONS (1)
  - FEMORAL NECK FRACTURE [None]
